FAERS Safety Report 13121881 (Version 1)
Quarter: 2017Q1

REPORT INFORMATION
  Report Type: Spontaneous
  Country: US (occurrence: US)
  Receive Date: 20170116
  Receipt Date: 20170116
  Transmission Date: 20170428
  Serious: No
  Sender: FDA-Public Use
  Company Number: None

PATIENT
  Age: 52 Year
  Weight: 83.25 kg

DRUGS (3)
  1. GINGKO BILOBA [Concomitant]
  2. CIPROFLOXACIN. [Suspect]
     Active Substance: CIPROFLOXACIN
     Indication: URINARY TRACT INFECTION
     Dosage: ?          QUANTITY:14 TABLET(S);?
     Route: 048
     Dates: start: 20160505, end: 20160602
  3. VITAMIN B COMPLEX [Concomitant]
     Active Substance: CYANOCOBALAMIN\DEXPANTHENOL\NIACINAMIDE\PYRIDOXINE HYDROCHLORIDE\RIBOFLAVIN 5^-PHOSPHATE SODIUM\THIAMINE HYDROCHLORIDE\VITAMIN B COMPLEX

REACTIONS (11)
  - Pain [None]
  - Neuralgia [None]
  - Muscle twitching [None]
  - Exercise tolerance decreased [None]
  - Collagen disorder [None]
  - Fatigue [None]
  - Dental caries [None]
  - Gait disturbance [None]
  - Tendon disorder [None]
  - Tendon rupture [None]
  - Tooth infection [None]

NARRATIVE: CASE EVENT DATE: 20160627
